FAERS Safety Report 24560871 (Version 1)
Quarter: 2024Q4

REPORT INFORMATION
  Report Type: Spontaneous
  Country: PL (occurrence: PL)
  Receive Date: 20241029
  Receipt Date: 20241029
  Transmission Date: 20250114
  Serious: Yes (Hospitalization)
  Sender: PFIZER
  Company Number: PL-ROCHE-10000107257

PATIENT
  Age: 65 Year
  Sex: Female

DRUGS (4)
  1. RITUXIMAB [Suspect]
     Active Substance: RITUXIMAB
     Indication: Diffuse large B-cell lymphoma
     Dosage: 589 MG, CYCLIC (1 CYCLE)
     Route: 042
     Dates: start: 20240304, end: 20240304
  2. CARBOPLATIN [Suspect]
     Active Substance: CARBOPLATIN
     Indication: Diffuse large B-cell lymphoma
     Dosage: 513 MG, CYCLIC (1 CYCLE)
     Route: 042
     Dates: start: 20240305, end: 20240305
  3. ETOPOSIDE [Suspect]
     Active Substance: ETOPOSIDE
     Indication: Diffuse large B-cell lymphoma
     Dosage: 157 MG, 1X/DAY
     Route: 042
     Dates: start: 20240304, end: 20240306
  4. IFOSFAMIDE [Suspect]
     Active Substance: IFOSFAMIDE
     Indication: Diffuse large B-cell lymphoma
     Dosage: 7850 MG, CYCLIC (1 CYCLE)
     Route: 042
     Dates: start: 20240305, end: 20240306

REACTIONS (2)
  - Pyelonephritis acute [Recovered/Resolved]
  - Off label use [Unknown]

NARRATIVE: CASE EVENT DATE: 20240305
